FAERS Safety Report 9381731 (Version 1)
Quarter: 2013Q3

REPORT INFORMATION
  Report Type: Spontaneous
  Country: FR (occurrence: FR)
  Receive Date: 20130703
  Receipt Date: 20130703
  Transmission Date: 20140515
  Serious: Yes (Hospitalization)
  Sender: FDA-Public Use
  Company Number: FR-PFIZER INC-2013193666

PATIENT
  Age: 67 Year
  Sex: Male

DRUGS (2)
  1. ALDACTONE [Suspect]
     Dosage: 75 MG, ALTERNATE DAY
     Route: 048
     Dates: start: 201302, end: 201303
  2. LASILIX [Concomitant]

REACTIONS (3)
  - Toxic skin eruption [Recovered/Resolved]
  - Rash generalised [Recovered/Resolved]
  - Pruritus [Recovered/Resolved]
